FAERS Safety Report 19967962 (Version 2)
Quarter: 2023Q1

REPORT INFORMATION
  Report Type: Spontaneous
  Country: FR (occurrence: FR)
  Receive Date: 20211019
  Receipt Date: 20230221
  Transmission Date: 20230417
  Serious: Yes (Hospitalization)
  Sender: FDA-Public Use
  Company Number: None

PATIENT
  Age: 61 Year
  Sex: Male
  Weight: 49 kg

DRUGS (24)
  1. ALIMTA [Suspect]
     Active Substance: PEMETREXED DISODIUM
     Indication: Lung adenocarcinoma stage IV
     Dosage: UNK, UNKNOWN (C1)
     Route: 042
     Dates: start: 20210409
  2. ALIMTA [Suspect]
     Active Substance: PEMETREXED DISODIUM
     Dosage: UNK, UNKNOWN
     Route: 042
     Dates: start: 20210430
  3. ALIMTA [Suspect]
     Active Substance: PEMETREXED DISODIUM
     Dosage: UNK, UNKNOWN
     Route: 042
     Dates: start: 20210625
  4. ALIMTA [Suspect]
     Active Substance: PEMETREXED DISODIUM
     Dosage: UNK, UNKNOWN
     Route: 042
     Dates: start: 20210723
  5. CARBOPLATIN [Suspect]
     Active Substance: CARBOPLATIN
     Indication: Lung adenocarcinoma stage IV
     Dosage: UNK, UNKNOWN (C1)
     Route: 042
     Dates: start: 20210409
  6. CARBOPLATIN [Suspect]
     Active Substance: CARBOPLATIN
     Dosage: UNK, UNKNOWN
     Route: 042
     Dates: start: 20210430
  7. CARBOPLATIN [Suspect]
     Active Substance: CARBOPLATIN
     Dosage: UNK, UNKNOWN
     Route: 042
     Dates: start: 20210625
  8. CARBOPLATIN [Suspect]
     Active Substance: CARBOPLATIN
     Dosage: UNK, UNKNOWN
     Route: 042
     Dates: start: 20210723
  9. PEMBROLIZUMAB [Suspect]
     Active Substance: PEMBROLIZUMAB
     Indication: Lung adenocarcinoma stage IV
     Dosage: UNK UNK, UNKNOWN (C1)
     Route: 042
     Dates: start: 20210409
  10. PEMBROLIZUMAB [Suspect]
     Active Substance: PEMBROLIZUMAB
     Dosage: UNK, UNKNOWN (C2)
     Route: 042
     Dates: start: 20210430
  11. PEMBROLIZUMAB [Suspect]
     Active Substance: PEMBROLIZUMAB
     Dosage: UNK, UNKNOWN (C3)
     Route: 042
     Dates: start: 20210625
  12. PEMBROLIZUMAB [Suspect]
     Active Substance: PEMBROLIZUMAB
     Dosage: UNK, UNKNOWN (C4)
     Route: 042
     Dates: start: 20210723
  13. ISONIAZID [Suspect]
     Active Substance: ISONIAZID
     Indication: Tuberculosis
     Dosage: UNK, UNKNOWN
     Route: 048
     Dates: start: 20210420, end: 20210514
  14. ISONIAZID [Suspect]
     Active Substance: ISONIAZID
     Dosage: UNK, UNKNOWN
     Route: 048
     Dates: start: 20210702, end: 20210712
  15. ISONIAZID [Suspect]
     Active Substance: ISONIAZID
     Dosage: UNK, UNKNOWN
     Route: 048
     Dates: start: 20210727, end: 20210805
  16. ISONIAZID [Suspect]
     Active Substance: ISONIAZID
     Dosage: UNK, UNKNOWN
     Route: 048
     Dates: start: 20210808, end: 20210810
  17. RIFAMPIN [Concomitant]
     Active Substance: RIFAMPIN
     Indication: Product used for unknown indication
     Dosage: UNK UNK, UNKNOWN
     Route: 048
     Dates: start: 20210420, end: 20210515
  18. RIFAMPIN [Concomitant]
     Active Substance: RIFAMPIN
     Dosage: UNK UNK, UNKNOWN
     Route: 048
     Dates: start: 20210630, end: 20210712
  19. LEVOFLOXACIN [Concomitant]
     Active Substance: LEVOFLOXACIN
     Indication: Product used for unknown indication
     Dosage: UNK UNK, UNKNOWN
     Route: 048
     Dates: start: 20210727, end: 20210808
  20. LEVOFLOXACIN [Concomitant]
     Active Substance: LEVOFLOXACIN
     Dosage: UNK UNK, UNKNOWN
     Route: 048
     Dates: start: 20210630, end: 20210712
  21. LEVOFLOXACIN [Concomitant]
     Active Substance: LEVOFLOXACIN
     Dosage: UNK UNK, UNKNOWN
     Route: 048
     Dates: start: 20210812
  22. BEDAQUILINE [Concomitant]
     Active Substance: BEDAQUILINE
     Indication: Product used for unknown indication
     Dosage: UNK, UNKNOWN
     Route: 048
     Dates: start: 20210727, end: 20210805
  23. BEDAQUILINE [Concomitant]
     Active Substance: BEDAQUILINE
     Dosage: UNK, UNKNOWN
     Route: 048
     Dates: start: 20210812
  24. PYRAZINAMIDE [Concomitant]
     Active Substance: PYRAZINAMIDE
     Indication: Product used for unknown indication
     Dosage: UNK, UNKNOWN
     Route: 048
     Dates: start: 20210420, end: 20210515

REACTIONS (1)
  - Haemophagocytic lymphohistiocytosis [Recovered/Resolved]

NARRATIVE: CASE EVENT DATE: 20210711
